FAERS Safety Report 6870630-6 (Version None)
Quarter: 2010Q3

REPORT INFORMATION
  Report Type: 
  Country: None (occurrence: None)
  Receive Date: 20100723
  Receipt Date: 20100713
  Transmission Date: 20110219
  Serious: Yes (Other)
  Sender: FDA-Public Use
  Company Number: PHHY2010PT45669

PATIENT
  Sex: Female

DRUGS (6)
  1. FORADIL [Suspect]
     Dosage: ONCE A DAY
  2. FORADIL [Suspect]
     Dosage: UNK
     Route: 048
     Dates: start: 20100713
  3. LOVENOX [Concomitant]
  4. NIMESULIDE [Concomitant]
  5. FLIXOTIDE DISKUS [Concomitant]
  6. CLAVAMOX [Concomitant]

REACTIONS (4)
  - BONE DISORDER [None]
  - BONE OPERATION [None]
  - INCORRECT ROUTE OF DRUG ADMINISTRATION [None]
  - OVERDOSE [None]
